FAERS Safety Report 24608360 (Version 1)
Quarter: 2024Q4

REPORT INFORMATION
  Report Type: Spontaneous
  Country: GB (occurrence: GB)
  Receive Date: 20241112
  Receipt Date: 20241112
  Transmission Date: 20250114
  Serious: Yes (Other)
  Sender: AUROBINDO
  Company Number: GB-MHRA-TPP21346465C966245YC1730116961876

PATIENT
  Age: 70 Year
  Sex: Male
  Weight: 79 kg

DRUGS (14)
  1. ATORVASTATIN CALCIUM [Suspect]
     Active Substance: ATORVASTATIN CALCIUM
     Indication: Ill-defined disorder
     Dosage: 40 MILLIGRAM, ONCE A DAY
     Route: 065
     Dates: start: 20241009, end: 20241028
  2. OPICAPONE [Concomitant]
     Active Substance: OPICAPONE
     Indication: Ill-defined disorder
     Dosage: UNK(TAKE ONE DAILY AT BEDTIME. STOP ENTACAPONE)
     Route: 065
     Dates: start: 20240902
  3. CHOLECALCIFEROL [Concomitant]
     Active Substance: CHOLECALCIFEROL
     Indication: Ill-defined disorder
     Dosage: UNK(1 DAILY FOR TWELVE WEEKS (AFTER FINISHING THE C...)
     Route: 065
     Dates: start: 20240920
  4. LACTULOSE [Concomitant]
     Active Substance: LACTULOSE
     Indication: Ill-defined disorder
     Dosage: UNK(TAKE 15MLS TWICE A DAY AS DIRECTED)
     Route: 065
     Dates: start: 20241005, end: 20241015
  5. TRAVATAN [Concomitant]
     Active Substance: TRAVOPROST
     Indication: Ill-defined disorder
     Dosage: UNK(ONE DROP ONCE DAILY IN BOTH EYES)
     Route: 065
     Dates: start: 20230621
  6. Clinitas [Concomitant]
     Indication: Ill-defined disorder
     Dosage: UNK(USE AT NIGHT IN BOTH EYES AS DIRECTED)
     Route: 065
     Dates: start: 20230621
  7. HYLO FORTE [Concomitant]
     Indication: Ill-defined disorder
     Dosage: UNK(USE AS DIRECTED THREE TIMES DAILY IN BOTH EYES)
     Route: 065
     Dates: start: 20230621
  8. ASPIRIN [Concomitant]
     Active Substance: ASPIRIN
     Indication: Ill-defined disorder
     Dosage: 1 DOSAGE FORM, DAILY
     Route: 065
     Dates: start: 20230831
  9. LANSOPRAZOLE [Concomitant]
     Active Substance: LANSOPRAZOLE
     Indication: Ill-defined disorder
     Dosage: 1 DOSAGE FORM, ONCE A DAY
     Route: 065
     Dates: start: 20230831
  10. RAMIPRIL [Concomitant]
     Active Substance: RAMIPRIL
     Indication: Ill-defined disorder
     Dosage: 1 DOSAGE FORM, DAILY
     Route: 065
     Dates: start: 20230831
  11. TICAGRELOR [Concomitant]
     Active Substance: TICAGRELOR
     Indication: Ill-defined disorder
     Dosage: 1 DOSAGE FORM, DAILY
     Route: 065
     Dates: start: 20230831, end: 20240909
  12. CARBIDOPA\LEVODOPA [Concomitant]
     Active Substance: CARBIDOPA\LEVODOPA
     Indication: Ill-defined disorder
     Dosage: ONE TABLET FOUR TIMES DAILY AT 7:00, 11:00, 15:...
     Route: 065
     Dates: start: 20231212
  13. ISOSORBIDE MONONITRATE [Concomitant]
     Active Substance: ISOSORBIDE MONONITRATE
     Indication: Ill-defined disorder
     Dosage: TAKE HALF A TABLET ONCE A DAY
     Route: 065
     Dates: start: 20240605
  14. ENTACAPONE [Concomitant]
     Active Substance: ENTACAPONE
     Indication: Ill-defined disorder
     Dosage: ONE TABLET AT 7 AM, 11 AM, 3 PM AND 7 PM.
     Route: 065
     Dates: start: 20240720, end: 20240902

REACTIONS (1)
  - Hepatic enzyme increased [Recovered/Resolved]
